FAERS Safety Report 6595500-2 (Version None)
Quarter: 2010Q1

REPORT INFORMATION
  Report Type: 
  Country: None (occurrence: None)
  Receive Date: 20100223
  Receipt Date: 20100216
  Transmission Date: 20100710
  Serious: Yes (Hospitalization)
  Sender: FDA-Public Use
  Company Number: ES-MPIJNJ-2010-01301

PATIENT

DRUGS (2)
  1. VELCADE [Suspect]
     Indication: MULTIPLE MYELOMA
     Dosage: 1.3 MG, UNK
     Route: 042
  2. DEXAMETHASONE [Concomitant]

REACTIONS (3)
  - MENTAL STATUS CHANGES [None]
  - MUSCLE RIGIDITY [None]
  - STUPOR [None]
